FAERS Safety Report 12351626 (Version 1)
Quarter: 2016Q2

REPORT INFORMATION
  Report Type: Spontaneous
  Country: US (occurrence: US)
  Receive Date: 20160510
  Receipt Date: 20160510
  Transmission Date: 20160815
  Serious: Yes (Other)
  Sender: FDA-Public Use
  Company Number: US-AMGEN-USASP2016057636

PATIENT
  Sex: Female

DRUGS (1)
  1. PROLIA [Suspect]
     Active Substance: DENOSUMAB
     Indication: OSTEOPENIA
     Dosage: UNK, UNK
     Route: 065
     Dates: start: 201512

REACTIONS (7)
  - Off label use [Unknown]
  - Pain in extremity [Unknown]
  - Stress fracture [Unknown]
  - Drug effect delayed [Unknown]
  - Wheelchair user [Unknown]
  - Walking aid user [Unknown]
  - Arthralgia [Unknown]

NARRATIVE: CASE EVENT DATE: 201602
